FAERS Safety Report 16366933 (Version 1)
Quarter: 2019Q2

REPORT INFORMATION
  Report Type: Spontaneous
  Country: US (occurrence: US)
  Receive Date: 20190422
  Receipt Date: 20190422
  Transmission Date: 20190711
  Serious: Yes (Other)
  Sender: FDA-Public Use
  Company Number: None

PATIENT
  Age: 29 Year
  Sex: Male

DRUGS (11)
  1. WARFARIN [Concomitant]
     Active Substance: WARFARIN
  2. LISINOPRIL. [Concomitant]
     Active Substance: LISINOPRIL
  3. VENTOLIN HFA [Concomitant]
     Active Substance: ALBUTEROL SULFATE
  4. SPIRONOLACTONE. [Concomitant]
     Active Substance: SPIRONOLACTONE
  5. SILDENAFIL. [Concomitant]
     Active Substance: SILDENAFIL
  6. TRIAMCINOLONE [Concomitant]
     Active Substance: TRIAMCINOLONE
  7. DIGOXIN. [Concomitant]
     Active Substance: DIGOXIN
  8. LETAIRIS [Suspect]
     Active Substance: AMBRISENTAN
     Indication: PULMONARY ARTERIAL HYPERTENSION
     Route: 048
     Dates: start: 201408
  9. TORSEMIDE. [Concomitant]
     Active Substance: TORSEMIDE
  10. CARVEDILOL. [Concomitant]
     Active Substance: CARVEDILOL
  11. NASALIDE [Concomitant]
     Active Substance: FLUNISOLIDE

REACTIONS (1)
  - Post procedural haemorrhage [None]

NARRATIVE: CASE EVENT DATE: 20190415
